FAERS Safety Report 20990977 (Version 2)
Quarter: 2022Q4

REPORT INFORMATION
  Report Type: Spontaneous
  Country: JP (occurrence: JP)
  Receive Date: 20220622
  Receipt Date: 20221216
  Transmission Date: 20230112
  Serious: Yes (Other)
  Sender: FDA-Public Use
  Company Number: JP-UNITED THERAPEUTICS-UNT-2021-026774

PATIENT
  Age: 6 Decade
  Sex: Female
  Weight: 63 kg

DRUGS (4)
  1. REMODULIN [Suspect]
     Active Substance: TREPROSTINIL
     Indication: Pulmonary arterial hypertension
     Dosage: UNK, CONTINUING
     Route: 058
     Dates: start: 20211222
  2. REMODULIN [Suspect]
     Active Substance: TREPROSTINIL
     Dosage: UNK (DOSING RATE OF 4UL/H), CONTINUING
     Route: 058
  3. RIOCIGUAT [Concomitant]
     Active Substance: RIOCIGUAT
     Indication: Pulmonary arterial hypertension
     Dosage: UNK
     Route: 065
  4. MACITENTAN [Concomitant]
     Active Substance: MACITENTAN
     Indication: Pulmonary arterial hypertension
     Dosage: UNK
     Route: 065

REACTIONS (11)
  - Pulmonary congestion [Unknown]
  - Intentional product use issue [Unknown]
  - Needle issue [Unknown]
  - Injection site discomfort [Unknown]
  - Injection site pruritus [Unknown]
  - Injection site erythema [Recovering/Resolving]
  - Injection site warmth [Unknown]
  - Injection site pain [Unknown]
  - Oxygen saturation decreased [Unknown]
  - Peripheral venous disease [Recovered/Resolved]
  - Injection site injury [Recovered/Resolved]

NARRATIVE: CASE EVENT DATE: 20211201
